FAERS Safety Report 8913051 (Version 2)
Quarter: 2013Q1

REPORT INFORMATION
  Report Type: Spontaneous
  Country: US (occurrence: None)
  Receive Date: 20121113
  Receipt Date: 20121213
  Transmission Date: 20140127
  Serious: Yes (Hospitalization)
  Sender: FDA-Public Use
  Company Number: DSU-2012-08818

PATIENT
  Age: 80 Year
  Sex: Female
  Weight: 57.61 kg

DRUGS (8)
  1. WELCHOL [Suspect]
     Indication: HYPERLIPIDAEMIA
     Dosage: 1875 MG (625 MG, TID), PER ORAL
     Route: 048
     Dates: start: 2011
  2. ALLOPURINOL (ALLOPURINOL) (ALLOPURINOL) [Concomitant]
  3. ZETIA EZETIMIBE) (EZETIMIBE) [Concomitant]
  4. ASPIRIN (ACETYLSALICYLIC ACID) (ACETYLSALICYLIC ACID) [Concomitant]
  5. TORSEMIDE (TORASEMIDE) (TORASEMIDE) [Concomitant]
  6. FERROUS SULFATE (FERROUS SULFATE) (FERROUS SULFATE) [Concomitant]
  7. POTASSIUM CHLORIDE (POTASSIUM CHLORIDE) (POTASSIUM CHLORIDE) [Concomitant]
  8. CENTRUM SILVER (ASCORBIC ACID, TOCOPHERYL ACETATE, RETINOL, ZINC, CALCIUM, VITAMINS NOS, MINERALS NOS, VITAMIN B NOS) (ASCORBIC ACID, TOCOPHERYL ACETATE, RETINOL, ZINC, CALCIUM, VITAMINS NOS, MINERALS NOS, VITAMINS B NOS) [Suspect]

REACTIONS (3)
  - Cardiac failure congestive [None]
  - Myocardial infarction [None]
  - Heart valve replacement [None]
